FAERS Safety Report 25483501 (Version 1)
Quarter: 2025Q2

REPORT INFORMATION
  Report Type: Spontaneous
  Country: CN (occurrence: CN)
  Receive Date: 20250626
  Receipt Date: 20250626
  Transmission Date: 20250717
  Serious: Yes (Hospitalization)
  Sender: BLUEPRINT MEDICINES
  Company Number: CN-CSTONE PHARMACEUTICALS (SUZHOU) CO., LTD.-2025CN00409

PATIENT
  Age: 50 Year
  Sex: Female
  Weight: 47.1 kg

DRUGS (5)
  1. AYVAKIT [Suspect]
     Active Substance: AVAPRITINIB
     Indication: Acute myeloid leukaemia
     Dosage: 100 MILLIGRAM, QD
     Route: 048
     Dates: start: 20250604, end: 20250605
  2. IDARUBICIN [Concomitant]
     Active Substance: IDARUBICIN
     Indication: Acute myeloid leukaemia
     Dosage: 18 MILLIGRAM, QD
     Route: 041
     Dates: start: 20250528, end: 20250531
  3. CASPOFUNGIN [Concomitant]
     Active Substance: CASPOFUNGIN
     Indication: Acute myeloid leukaemia
     Dosage: 50 MILLIGRAM, QD
     Route: 041
     Dates: start: 20250523, end: 20250606
  4. MEROPENEM [Concomitant]
     Active Substance: MEROPENEM
     Indication: Acute myeloid leukaemia
     Dosage: 1.000 GRAM, TID
     Route: 041
     Dates: start: 20250530, end: 20250609
  5. CYTARABINE [Concomitant]
     Active Substance: CYTARABINE
     Indication: Acute myeloid leukaemia
     Dosage: 0.150 GRAM, QD
     Route: 041
     Dates: start: 20250528, end: 20250604

REACTIONS (1)
  - Gastrointestinal disorder [Recovering/Resolving]

NARRATIVE: CASE EVENT DATE: 20250605
